FAERS Safety Report 5557432-8 (Version None)
Quarter: 2007Q4

REPORT INFORMATION
  Report Type: 
  Country: None (occurrence: None)
  Receive Date: 20071214
  Receipt Date: 20071206
  Transmission Date: 20080405
  Serious: Yes (Other)
  Sender: FDA-Public Use
  Company Number: BR-JNJFOC-20071000975

PATIENT
  Sex: Male

DRUGS (3)
  1. TYLENOL (CAPLET) [Suspect]
     Indication: PYREXIA
     Route: 048
  2. TYLENOL (CAPLET) [Suspect]
     Indication: INFLUENZA
     Route: 048
  3. DIPYRONE [Concomitant]
     Indication: PYREXIA
     Dosage: AS NEEDED

REACTIONS (3)
  - DRUG INEFFECTIVE [None]
  - INCORRECT DOSE ADMINISTERED [None]
  - SOMNOLENCE [None]
